FAERS Safety Report 9506496 (Version 1)
Quarter: 2013Q3

REPORT INFORMATION
  Report Type: Report from Study
  Country: BR (occurrence: BR)
  Receive Date: 20130906
  Receipt Date: 20130906
  Transmission Date: 20140515
  Serious: Yes (Other)
  Sender: FDA-Public Use
  Company Number: PHHY2013BR098194

PATIENT
  Sex: Female

DRUGS (1)
  1. ACLASTA [Suspect]
     Indication: OSTEOPOROSIS
     Dosage: 5 MG, UNK
     Route: 042
     Dates: start: 2011

REACTIONS (7)
  - Vaginal cancer [Recovering/Resolving]
  - Apathy [Recovering/Resolving]
  - Spinal pain [Recovering/Resolving]
  - Nervousness [Recovering/Resolving]
  - Feeling of despair [Recovering/Resolving]
  - Back pain [Recovering/Resolving]
  - Pruritus [Recovering/Resolving]
